FAERS Safety Report 8901766 (Version 1)
Quarter: 2012Q4

REPORT INFORMATION
  Report Type: Spontaneous
  Country: GB (occurrence: None)
  Receive Date: 20121101
  Receipt Date: 20121101
  Transmission Date: 20130627
  Serious: Yes (Other)
  Sender: FDA-Public Use
  Company Number: 2012R1-61213

PATIENT
  Age: 56 Year
  Sex: Male

DRUGS (7)
  1. AMOXICILLIN [Suspect]
     Indication: LOWER RESPIRATORY TRACT INFECTION
     Dates: start: 20120913, end: 20120914
  2. BUDESONIDE (BUDESONIDE) [Concomitant]
  3. DICLOFENAC (DICLOFENAC) [Concomitant]
  4. PARACETAMOL (PARACETAMOL) [Concomitant]
  5. SALMETEROL (SALMETEROL) [Concomitant]
  6. RIVAROXABAN (RIVAROXABAN) [Concomitant]
  7. VERAPAMIL (VERAPAMIL) [Concomitant]

REACTIONS (5)
  - Hypersensitivity [None]
  - Parosmia [None]
  - Swelling [None]
  - Dysgeusia [None]
  - Swelling face [None]
